FAERS Safety Report 8325318-1 (Version None)
Quarter: 2012Q2

REPORT INFORMATION
  Report Type: 
  Country: None (occurrence: None)
  Receive Date: 20120501
  Receipt Date: 20120425
  Transmission Date: 20120825
  Serious: Yes (Hospitalization, Other)
  Sender: FDA-Public Use
  Company Number: US-JNJFOC-20120306518

PATIENT
  Sex: Female
  Weight: 55.16 kg

DRUGS (17)
  1. CLONAZEPAM [Concomitant]
  2. REQUIP [Concomitant]
     Dosage: STARTED ABOUT 2009
     Route: 048
  3. SYNTHROID [Concomitant]
     Dosage: 50 MCG; STARTED AROUND 2004
     Route: 048
  4. BACTRIM DS [Concomitant]
  5. PRILOSEC [Concomitant]
     Dosage: STARTED AROUND 2007
     Route: 048
  6. PERCOCET [Concomitant]
     Dosage: 5/325 MG; STARTED AROUND 2004; TWO IN MORNING, TWO IN PM, TWO AT BEDTIME
  7. FLEXERIL [Suspect]
     Indication: PAIN
     Route: 048
     Dates: start: 20070101, end: 20111201
  8. INVEGA [Concomitant]
     Route: 048
     Dates: start: 20111201
  9. VITRON-C [Concomitant]
     Dosage: 65/125 MG
     Route: 048
     Dates: start: 20111201
  10. COGENTIN [Concomitant]
     Route: 048
     Dates: start: 20111201
  11. ASPIRIN [Concomitant]
     Route: 048
     Dates: start: 20111201
  12. CYMBALTA [Suspect]
     Indication: DEPRESSION
     Dosage: STARTED AROUND 2005.
     Route: 048
  13. IBUPROFEN [Concomitant]
     Dosage: STARTED IN ABOUT 2006
     Route: 048
  14. BENADRYL [Concomitant]
     Route: 048
     Dates: start: 20111201
  15. FOCALIN [Concomitant]
     Dosage: 2 IN AM, 2 AT NOON, AND 1 AT 5PM; STARTED AROUND 2004
  16. ATIVAN [Concomitant]
     Route: 048
     Dates: start: 20111201
  17. TRAZODONE HCL [Concomitant]
     Dosage: STARTED AROUND 2005
     Route: 048

REACTIONS (6)
  - ROAD TRAFFIC ACCIDENT [None]
  - ASTHENIA [None]
  - LOSS OF CONSCIOUSNESS [None]
  - CARDIOMYOPATHY [None]
  - BIPOLAR DISORDER [None]
  - NECK PAIN [None]
